FAERS Safety Report 5825522-8 (Version None)
Quarter: 2008Q3

REPORT INFORMATION
  Report Type: 
  Country: None (occurrence: None)
  Receive Date: 20080729
  Receipt Date: 20080724
  Transmission Date: 20090109
  Serious: Yes (Other)
  Sender: FDA-Public Use
  Company Number: US-ASTRAZENECA-2008UW14522

PATIENT
  Age: 36 Year
  Sex: Female
  Weight: 57.6 kg

DRUGS (1)
  1. PRILOSEC OTC [Suspect]
     Indication: GASTROOESOPHAGEAL REFLUX DISEASE
     Route: 048
     Dates: start: 20080701, end: 20080701

REACTIONS (6)
  - DIZZINESS [None]
  - HYPERSENSITIVITY [None]
  - MIGRAINE [None]
  - RASH [None]
  - TACHYCARDIA [None]
  - URTICARIA [None]
